FAERS Safety Report 8506196-4 (Version None)
Quarter: 2012Q3

REPORT INFORMATION
  Report Type: 
  Country: None (occurrence: None)
  Receive Date: 20120712
  Receipt Date: 20120706
  Transmission Date: 20120928
  Serious: Yes (Other)
  Sender: FDA-Public Use
  Company Number: CA-ROCHE-1085777

PATIENT
  Sex: Female
  Weight: 64.922 kg

DRUGS (5)
  1. ACTEMRA [Suspect]
     Indication: RHEUMATOID ARTHRITIS
     Route: 042
     Dates: start: 20120306
  2. LEFLUNOMIDE [Concomitant]
  3. NORVASC [Concomitant]
  4. PLAQUENIL [Concomitant]
  5. ACTEMRA [Suspect]
     Route: 042
     Dates: start: 20120403

REACTIONS (1)
  - KNEE OPERATION [None]
